FAERS Safety Report 5064760-1 (Version None)
Quarter: 2006Q3

REPORT INFORMATION
  Report Type: 
  Country: None (occurrence: None)
  Receive Date: 20060725
  Receipt Date: 20060717
  Transmission Date: 20061208
  Serious: Yes (Hospitalization, Other)
  Sender: FDA-Public Use
  Company Number: 232779K06USA

PATIENT
  Age: 62 Year
  Sex: Female

DRUGS (4)
  1. REBIF [Suspect]
     Indication: MULTIPLE SCLEROSIS
     Dosage: 3 IN 1 WEEKS
     Dates: start: 20040202
  2. ZOCOR [Concomitant]
  3. GLUCOPHAGE (METFORMIN /00082701/) [Concomitant]
  4. AVANDIA [Concomitant]

REACTIONS (7)
  - CHEST PAIN [None]
  - CONDITION AGGRAVATED [None]
  - HEADACHE [None]
  - MULTIPLE SCLEROSIS [None]
  - NAUSEA [None]
  - PAIN [None]
  - WOLFF-PARKINSON-WHITE SYNDROME [None]
